FAERS Safety Report 9009016 (Version 1)
Quarter: 2013Q1

REPORT INFORMATION
  Report Type: Spontaneous
  Country: US (occurrence: US)
  Receive Date: 20130111
  Receipt Date: 20130111
  Transmission Date: 20140127
  Serious: Yes (Other)
  Sender: FDA-Public Use
  Company Number: US-009507513-0909USA03358

PATIENT
  Age: 11 Year
  Sex: Male
  Weight: 48.53 kg

DRUGS (2)
  1. SINGULAIR [Suspect]
     Indication: MULTIPLE ALLERGIES
     Dosage: 5 MG, HS
     Route: 048
     Dates: start: 20060601, end: 20090224
  2. SINGULAIR [Suspect]
     Indication: ASTHMA

REACTIONS (1)
  - Gastroenteritis [Unknown]
